FAERS Safety Report 12383074 (Version 2)
Quarter: 2016Q2

REPORT INFORMATION
  Report Type: Report from Study
  Country: US (occurrence: US)
  Receive Date: 20160518
  Receipt Date: 20160627
  Transmission Date: 20160815
  Serious: Yes (Hospitalization)
  Sender: FDA-Public Use
  Company Number: US-ACTELION-A-US2015-113925

PATIENT
  Age: 76 Year
  Sex: Female

DRUGS (4)
  1. TREPROSTINIL [Concomitant]
     Active Substance: TREPROSTINIL
     Dosage: 11.125 MG, BID
     Route: 048
     Dates: start: 20140718
  2. RIOCIGUAT [Suspect]
     Active Substance: RIOCIGUAT
     Indication: PRODUCT USED FOR UNKNOWN INDICATION
     Route: 065
  3. TREPROSTINIL DIOLAMIN [Suspect]
     Active Substance: TREPROSTINIL DIOLAMINE
     Indication: PULMONARY ARTERIAL HYPERTENSION
     Dosage: 10.75 MG, Q12HRS
     Route: 048
     Dates: start: 20140718
  4. OPSUMIT [Suspect]
     Active Substance: MACITENTAN
     Indication: PULMONARY ARTERIAL HYPERTENSION
     Dosage: 10 MG, QD
     Route: 048
     Dates: start: 20131219

REACTIONS (12)
  - Adverse drug reaction [Unknown]
  - Fatigue [Unknown]
  - Headache [Unknown]
  - Right ventricular failure [Unknown]
  - No therapeutic response [Not Recovered/Not Resolved]
  - Diarrhoea [Unknown]
  - Abdominal discomfort [Unknown]
  - Flushing [Unknown]
  - Pneumonia [Unknown]
  - Dyspnoea [Unknown]
  - Pain in jaw [Unknown]
  - Pain [Unknown]
